APPROVED DRUG PRODUCT: VARENICLINE TARTRATE
Active Ingredient: VARENICLINE TARTRATE
Strength: EQ 0.5MG BASE
Dosage Form/Route: TABLET;ORAL
Application: A219106 | Product #001 | TE Code: AB
Applicant: REGCON HOLDINGS LLC
Approved: Oct 29, 2024 | RLD: No | RS: No | Type: RX